FAERS Safety Report 9549751 (Version 1)
Quarter: 2013Q3

REPORT INFORMATION
  Report Type: Spontaneous
  Country: US (occurrence: US)
  Receive Date: 20130924
  Receipt Date: 20130924
  Transmission Date: 20140515
  Serious: Yes (Other)
  Sender: FDA-Public Use
  Company Number: US-PURDUE-USA-2013-0106565

PATIENT
  Sex: Male

DRUGS (2)
  1. OXYCONTIN (NDA 22-272) [Suspect]
     Indication: BACK PAIN
     Dosage: QH20 MG, UNK
     Route: 048
  2. OXYCONTIN (NDA 22-272) [Suspect]
     Dosage: 40 MG, TID
     Route: 048

REACTIONS (13)
  - Cervical vertebral fracture [Unknown]
  - Spinal fracture [Unknown]
  - Hip arthroplasty [Unknown]
  - Drug withdrawal syndrome [Unknown]
  - Bone pain [Unknown]
  - Arthralgia [Unknown]
  - Pain [Unknown]
  - Hyperhidrosis [Unknown]
  - Restlessness [Unknown]
  - Feeling abnormal [Unknown]
  - Irritability [Unknown]
  - Inadequate analgesia [Unknown]
  - Anxiety [Unknown]
